FAERS Safety Report 6583257-0 (Version None)
Quarter: 2010Q1

REPORT INFORMATION
  Report Type: 
  Country: None (occurrence: None)
  Receive Date: 20100216
  Receipt Date: 20100209
  Transmission Date: 20100710
  Serious: Yes (Other)
  Sender: FDA-Public Use
  Company Number: A0778002A

PATIENT
  Age: 65 Year
  Sex: Male
  Weight: 88.6 kg

DRUGS (4)
  1. AVODART [Suspect]
     Route: 048
     Dates: start: 20040101, end: 20080101
  2. LOTREL [Concomitant]
  3. LOZOL [Concomitant]
  4. MOTRIN [Concomitant]

REACTIONS (7)
  - ARTHRALGIA [None]
  - ORCHITIS [None]
  - PROSTATE CANCER [None]
  - PROSTATIC SPECIFIC ANTIGEN INCREASED [None]
  - PROSTATITIS [None]
  - TESTICULAR SWELLING [None]
  - URETHRAL DISCHARGE [None]
